FAERS Safety Report 5842206-0 (Version None)
Quarter: 2008Q3

REPORT INFORMATION
  Report Type: 
  Country: None (occurrence: None)
  Receive Date: 20080731
  Receipt Date: 20080412
  Transmission Date: 20090109
  Serious: No
  Sender: FDA-Public Use
  Company Number: US200712004518

PATIENT
  Age: 77 Year
  Sex: Female
  Weight: 72.6 kg

DRUGS (18)
  1. BYETTA [Suspect]
     Indication: INSULIN-REQUIRING TYPE 2 DIABETES MELLITUS
     Dosage: 5 UG, 2/D, SUBCUTANEOUS, 5 UG, DAILY (1/D), SUBCUTANEOUS
     Route: 058
     Dates: start: 20071213, end: 20080331
  2. BYETTA [Suspect]
     Indication: INSULIN-REQUIRING TYPE 2 DIABETES MELLITUS
     Dosage: 5 UG, 2/D, SUBCUTANEOUS, 5 UG, DAILY (1/D), SUBCUTANEOUS
     Route: 058
     Dates: start: 20080401
  3. BYETTA [Suspect]
  4. EXENATIDE PEN, DISPOSABLE DEVICE (EXENATIDE PEN) PEN,DISPOSABLE [Concomitant]
  5. METFORMIN HCL [Concomitant]
  6. INSULIN (INSULIN) [Concomitant]
  7. GLUCOPHAGE [Concomitant]
  8. LISINOPRIL [Concomitant]
  9. VYTORIN [Concomitant]
  10. NORVASC [Concomitant]
  11. NEXIUM [Concomitant]
  12. SERTRALINE [Concomitant]
  13. ASPIRIN [Concomitant]
  14. FISH OIL (FISH OIL) [Concomitant]
  15. OCUVITE (ASCORBIC ACID, RETINOL, TOCOPHEROL) [Concomitant]
  16. COMBIVENT (IPRATROPIUM BROMIDE, SALBUTAMOL) [Concomitant]
  17. SPIRIVA [Concomitant]
  18. CADUET (AMLODIPINE BESILATE, ATORVASTATIN CALCIUM) [Concomitant]

REACTIONS (10)
  - ASTHENIA [None]
  - DYSPEPSIA [None]
  - FEELING ABNORMAL [None]
  - HEADACHE [None]
  - MALAISE [None]
  - NAUSEA [None]
  - PULMONARY CONGESTION [None]
  - TREMOR [None]
  - VOMITING [None]
  - WEIGHT DECREASED [None]
